FAERS Safety Report 6981032-6 (Version None)
Quarter: 2010Q3

REPORT INFORMATION
  Report Type: 
  Country: None (occurrence: None)
  Receive Date: 20100914
  Receipt Date: 20100906
  Transmission Date: 20110219
  Serious: Yes (Hospitalization)
  Sender: FDA-Public Use
  Company Number: GXKR2010DK10174

PATIENT
  Sex: Male

DRUGS (1)
  1. METHOTREXATE (NGX) [Suspect]
     Indication: COLITIS ULCERATIVE
     Route: 048
     Dates: start: 20090615, end: 20091205

REACTIONS (3)
  - INTRACRANIAL PRESSURE INCREASED [None]
  - PAPILLOEDEMA [None]
  - VISUAL FIELD TESTS ABNORMAL [None]
